FAERS Safety Report 7027454-9 (Version None)
Quarter: 2010Q4

REPORT INFORMATION
  Report Type: 
  Country: None (occurrence: None)
  Receive Date: 20101001
  Receipt Date: 20101001
  Transmission Date: 20110411
  Serious: Yes (Hospitalization)
  Sender: FDA-Public Use
  Company Number: None

PATIENT
  Sex: Male
  Weight: 113 kg

DRUGS (16)
  1. OXCARBAZEPINE [Suspect]
     Indication: SCHIZOAFFECTIVE DISORDER
     Dosage: 300 MG 3 TIMES A DAY ORALLY SEVERAL YEARS
     Route: 048
  2. HALDOL [Concomitant]
  3. FLUOXETINE [Concomitant]
  4. ZYPREXA [Concomitant]
  5. ATIVAN [Concomitant]
  6. SIMVASTATIN [Concomitant]
  7. MVT [Concomitant]
  8. VIT C [Concomitant]
  9. ZINC SULFATE [Concomitant]
  10. ASPIRIN [Concomitant]
  11. ANTACID TAB [Concomitant]
  12. MILK OF MAG [Concomitant]
  13. IBUPORFEN [Concomitant]
  14. BENZTROPINE MESYLATE [Concomitant]
  15. LOTRAMIN AF [Concomitant]
  16. GATORADE [Concomitant]

REACTIONS (2)
  - BLOOD SODIUM DECREASED [None]
  - LOSS OF CONSCIOUSNESS [None]
